FAERS Safety Report 7542585-2 (Version None)
Quarter: 2011Q2

REPORT INFORMATION
  Report Type: 
  Country: None (occurrence: None)
  Receive Date: 20110613
  Receipt Date: 20110609
  Transmission Date: 20111010
  Serious: Yes (Other)
  Sender: FDA-Public Use
  Company Number: CA-ROCHE-759552

PATIENT

DRUGS (6)
  1. TENOFOVIR DISOPROXIL FUMARATE [Concomitant]
     Route: 048
  2. RITONAVIR [Concomitant]
     Route: 048
  3. RIBAVIRIN [Suspect]
     Route: 048
     Dates: end: 20110303
  4. ATAZANAVIR [Concomitant]
     Route: 048
  5. ABACAVIR SULFATE AND LAMIVUDINE [Concomitant]
     Dosage: 1 TABLET
     Route: 048
  6. PEGASYS [Suspect]
     Route: 065
     Dates: end: 20110303

REACTIONS (1)
  - MYASTHENIA GRAVIS [None]
